FAERS Safety Report 8939807 (Version 1)
Quarter: 2012Q4

REPORT INFORMATION
  Report Type: 
  Country: DE (occurrence: DE)
  Receive Date: 20121203
  Receipt Date: 20121203
  Transmission Date: 20130627
  Serious: Yes (Hospitalization)
  Sender: FDA-Public Use
  Company Number: DE-BIOGENIDEC-2012BI055994

PATIENT
  Age: 34 Year
  Sex: Female
  Weight: 68 kg

DRUGS (2)
  1. AVONEX [Suspect]
     Indication: MULTIPLE SCLEROSIS
     Route: 030
     Dates: start: 20111201
  2. AIDA ETHINYLESTRADIOL DROSPIRENONE [Concomitant]
     Indication: CONTRACEPTION
     Dates: start: 20101015

REACTIONS (1)
  - Osteolysis [Recovered/Resolved]
